FAERS Safety Report 6976467-1 (Version None)
Quarter: 2010Q3

REPORT INFORMATION
  Report Type: 
  Country: None (occurrence: None)
  Receive Date: 20100910
  Receipt Date: 20100812
  Transmission Date: 20110219
  Serious: No
  Sender: FDA-Public Use
  Company Number: US-PFIZER INC-2010102263

PATIENT
  Sex: Male
  Weight: 88 kg

DRUGS (12)
  1. NITROSTAT [Suspect]
     Indication: ATRIAL FIBRILLATION
     Dosage: 0.4 MG, AS NEEDED
     Route: 048
     Dates: start: 20091201
  2. NITROSTAT [Suspect]
     Indication: CHEST PAIN
  3. ATENOLOL AND CHLORTHALIDONE [Concomitant]
     Indication: HYPERTENSION
     Dosage: 50 / 25 MG, UNK
  4. RAMIPRIL [Concomitant]
     Indication: HYPERTENSION
     Dosage: 2.5 MG, DAILY
  5. VERAPAMIL [Concomitant]
     Indication: HYPERTENSION
     Dosage: 120 MG, UNK
  6. WARFARIN [Concomitant]
     Indication: THROMBOSIS PROPHYLAXIS
     Dosage: 3 MG, DAILY
  7. OMEPRAZOLE [Concomitant]
     Dosage: 20 MG, UNK
  8. KLOR-CON [Concomitant]
     Indication: ELECTROLYTE SUBSTITUTION THERAPY
     Dosage: 10 MG, 2X/DAY
  9. PRAVASTATIN [Concomitant]
     Dosage: 40 MG, UNK
  10. MOBIC [Concomitant]
     Dosage: 15 MG, UNK
  11. NEURONTIN [Concomitant]
     Indication: PERIPHERAL NERVE INJURY
     Dosage: 100 MG, 2X/DAY
  12. ZOLOFT [Concomitant]
     Dosage: 50 MG, UNK

REACTIONS (1)
  - DRUG EFFECT DECREASED [None]
